FAERS Safety Report 20999288 (Version 1)
Quarter: 2022Q2

REPORT INFORMATION
  Report Type: Spontaneous
  Country: US (occurrence: None)
  Receive Date: 20220623
  Receipt Date: 20220623
  Transmission Date: 20220720
  Serious: No
  Sender: FDA-Public Use
  Company Number: None

PATIENT
  Age: 66 Year
  Sex: Female
  Weight: 77.11 kg

DRUGS (1)
  1. TALTZ [Suspect]
     Active Substance: IXEKIZUMAB
     Indication: Palmoplantar pustulosis
     Dosage: OTHER QUANTITY : 80MG (1 PEN);?FREQUENCY : AS DIRECTED;?1  INJECT SOMG (1 PEN) SUBCUTANEOUSLY AT WEE
     Route: 058
     Dates: start: 202205

REACTIONS (1)
  - Infection [None]
